FAERS Safety Report 19663675 (Version 2)
Quarter: 2021Q3

REPORT INFORMATION
  Report Type: Spontaneous
  Country: US (occurrence: US)
  Receive Date: 20210805
  Receipt Date: 20210921
  Transmission Date: 20211014
  Serious: Yes (Hospitalization)
  Sender: FDA-Public Use
  Company Number: US-HORIZON THERAPEUTICS-HZN-2021-005266

PATIENT

DRUGS (5)
  1. TEPEZZA [Suspect]
     Active Substance: TEPROTUMUMAB-TRBW
     Indication: ENDOCRINE OPHTHALMOPATHY
     Dosage: 1ST INFUSION
     Route: 065
     Dates: start: 20210512
  2. TEPEZZA [Suspect]
     Active Substance: TEPROTUMUMAB-TRBW
     Dosage: 5TH INFUSION
     Route: 065
     Dates: start: 20210825
  3. TEPEZZA [Suspect]
     Active Substance: TEPROTUMUMAB-TRBW
     Indication: EXOPHTHALMOS
     Dosage: 3RD INFUSION
     Route: 065
     Dates: start: 20210714
  4. TEPEZZA [Suspect]
     Active Substance: TEPROTUMUMAB-TRBW
     Indication: PAIN
     Dosage: 2ND INFUSION
     Route: 065
     Dates: start: 20210602
  5. TEPEZZA [Suspect]
     Active Substance: TEPROTUMUMAB-TRBW
     Indication: ERYTHEMA
     Dosage: 4TH INFUSION
     Route: 065
     Dates: start: 20210804

REACTIONS (5)
  - Vomiting [Unknown]
  - Hyperglycaemia [Unknown]
  - Tooth abscess [Unknown]
  - Anxiety [Unknown]
  - Nausea [Unknown]
